FAERS Safety Report 22384585 (Version 1)
Quarter: 2023Q2

REPORT INFORMATION
  Report Type: Spontaneous
  Country: US (occurrence: None)
  Receive Date: 20230528
  Receipt Date: 20230528
  Transmission Date: 20230721
  Serious: Yes (Life-Threatening, Hospitalization, Other)
  Sender: FDA-Public Use
  Company Number: None

PATIENT
  Age: 38 Year
  Sex: Male

DRUGS (2)
  1. HERBALS\MITRAGYNINE [Suspect]
     Active Substance: HERBALS\MITRAGYNINE
     Indication: Analgesic therapy
     Dosage: FREQUENCY : 4 TIMES A DAY;?
     Route: 048
     Dates: end: 20230427
  2. DEFIBRILATOR [Concomitant]

REACTIONS (6)
  - Cardiac arrest [None]
  - Seizure [None]
  - Brugada syndrome [None]
  - Fall [None]
  - Clavicle fracture [None]
  - Product use issue [None]

NARRATIVE: CASE EVENT DATE: 20230427
